FAERS Safety Report 8459542-4 (Version None)
Quarter: 2012Q2

REPORT INFORMATION
  Report Type: 
  Country: None (occurrence: None)
  Receive Date: 20120622
  Receipt Date: 20120615
  Transmission Date: 20120825
  Serious: Yes (Other)
  Sender: FDA-Public Use
  Company Number: BR-PFIZER INC-2012145952

PATIENT
  Age: 73 Year
  Sex: Female

DRUGS (8)
  1. RAZAPINA [Concomitant]
     Dosage: UNK
     Dates: start: 20120301
  2. LIPITOR [Suspect]
     Indication: BLOOD CHOLESTEROL
     Dosage: 40 MG, UNK
     Route: 048
     Dates: start: 20070101
  3. RANITIDINE [Concomitant]
     Dosage: UNK
     Dates: start: 20111201
  4. LORAZEPAM [Concomitant]
     Dosage: UNK
     Dates: start: 20120301
  5. EXFORGE [Concomitant]
     Dosage: UNK
     Dates: start: 20070101
  6. CLONAZEPAM [Concomitant]
     Dosage: UNK
     Dates: start: 19820101, end: 20120301
  7. CLOPIDOGREL [Concomitant]
     Dosage: UNK
     Dates: start: 20111201
  8. EXELON [Concomitant]
     Dosage: UNK
     Dates: start: 20111201

REACTIONS (5)
  - MEMORY IMPAIRMENT [None]
  - HYPERCALCAEMIA [None]
  - DEMENTIA [None]
  - BLOOD CHOLESTEROL INCREASED [None]
  - MALAISE [None]
